FAERS Safety Report 25670348 (Version 2)
Quarter: 2025Q3

REPORT INFORMATION
  Report Type: Spontaneous
  Country: US (occurrence: US)
  Receive Date: 20250812
  Receipt Date: 20250818
  Transmission Date: 20251021
  Serious: No
  Sender: PFIZER
  Company Number: US-PFIZER INC-202500160533

PATIENT
  Age: 55 Year
  Sex: Female

DRUGS (5)
  1. LITFULO [Suspect]
     Active Substance: RITLECITINIB TOSYLATE
  2. LISINOPRIL [Concomitant]
     Active Substance: LISINOPRIL
  3. LOSARTAN [Concomitant]
     Active Substance: LOSARTAN
  4. ROSUVASTATIN [Concomitant]
     Active Substance: ROSUVASTATIN
  5. CALCIUM [Concomitant]
     Active Substance: CALCIUM

REACTIONS (2)
  - Hot flush [Unknown]
  - Dermatitis [Unknown]

NARRATIVE: CASE EVENT DATE: 20250101
